FAERS Safety Report 7298772-4 (Version None)
Quarter: 2011Q1

REPORT INFORMATION
  Report Type: 
  Country: None (occurrence: None)
  Receive Date: 20110217
  Receipt Date: 20110210
  Transmission Date: 20110831
  Serious: Yes (Other)
  Sender: FDA-Public Use
  Company Number: US-ROCHE-735836

PATIENT
  Sex: Male
  Weight: 97.5 kg

DRUGS (5)
  1. KEFLEX [Concomitant]
  2. ACCUTANE [Suspect]
     Route: 065
     Dates: start: 19911203, end: 19920421
  3. MINOCIN [Concomitant]
  4. ACCUTANE [Suspect]
     Route: 065
     Dates: start: 19920101, end: 19930901
  5. ERYTHROMYCIN [Concomitant]

REACTIONS (11)
  - INTESTINAL HAEMORRHAGE [None]
  - DRY SKIN [None]
  - INTESTINAL OBSTRUCTION [None]
  - LIP DRY [None]
  - ARTHRALGIA [None]
  - HAEMORRHOIDS [None]
  - EPISTAXIS [None]
  - GASTROINTESTINAL INJURY [None]
  - COLITIS ULCERATIVE [None]
  - INFLAMMATORY BOWEL DISEASE [None]
  - TENDONITIS [None]
